FAERS Safety Report 17539517 (Version 1)
Quarter: 2020Q1

REPORT INFORMATION
  Report Type: Spontaneous
  Country: US (occurrence: US)
  Receive Date: 20200306
  Receipt Date: 20200306
  Transmission Date: 20200409
  Serious: Yes (Hospitalization)
  Sender: FDA-Public Use
  Company Number: None

PATIENT
  Age: 48 Year
  Sex: Female

DRUGS (19)
  1. FIORICET [Concomitant]
     Active Substance: ACETAMINOPHEN\BUTALBITAL\CAFFEINE
  2. IBUPROFEN. [Concomitant]
     Active Substance: IBUPROFEN
  3. GAS-X [Concomitant]
     Active Substance: DIMETHICONE
  4. VENTOLIN HFA [Concomitant]
     Active Substance: ALBUTEROL SULFATE
  5. HYDROXYZ PAM [Concomitant]
     Active Substance: HYDROXYZINE PAMOATE
  6. PROMETHAZINE [Concomitant]
     Active Substance: PROMETHAZINE HYDROCHLORIDE
  7. MONTELUKAST [Concomitant]
     Active Substance: MONTELUKAST SODIUM
  8. METHYLPRED [Concomitant]
     Active Substance: METHYLPREDNISOLONE
  9. XELJANZ XR [Suspect]
     Active Substance: TOFACITINIB CITRATE
     Indication: RHEUMATOID ARTHRITIS
     Route: 048
     Dates: start: 20190612
  10. LANTUS [Concomitant]
     Active Substance: INSULIN GLARGINE
  11. ATORVASTATIN [Concomitant]
     Active Substance: ATORVASTATIN
  12. OMEPRAZOLE. [Concomitant]
     Active Substance: OMEPRAZOLE
  13. ENBREL [Suspect]
     Active Substance: ETANERCEPT
     Indication: RHEUMATOID ARTHRITIS
     Route: 058
  14. BACLOFEN. [Concomitant]
     Active Substance: BACLOFEN
  15. BYDUREON [Concomitant]
     Active Substance: EXENATIDE
  16. FLUTICASONE. [Concomitant]
     Active Substance: FLUTICASONE
  17. ZYRTEC [Concomitant]
     Active Substance: CETIRIZINE HYDROCHLORIDE
  18. ONDANSETRON [Concomitant]
     Active Substance: ONDANSETRON
  19. ZOLOFT [Concomitant]
     Active Substance: SERTRALINE HYDROCHLORIDE

REACTIONS (3)
  - Constipation [None]
  - Vomiting [None]
  - Dehydration [None]
